FAERS Safety Report 9535915 (Version 1)
Quarter: 2013Q2

REPORT INFORMATION
  Report Type: Spontaneous
  Country: US (occurrence: None)
  Receive Date: 20130507
  Receipt Date: 20130507
  Transmission Date: 20140414
  Serious: No
  Sender: FDA-Public Use
  Company Number: PHEH2013US004996

PATIENT
  Age: 53 Year
  Sex: Female
  Weight: 70 kg

DRUGS (4)
  1. AFINITOR (RAD) TABLET, 10MG [Suspect]
     Route: 048
  2. AROMASIN (EXEMESTANE) [Concomitant]
  3. ZOLOFT (SERTRALINE HYDROCHLORIDE) [Concomitant]
  4. TRAMADOL HCL [Concomitant]

REACTIONS (3)
  - Stomatitis [None]
  - Fatigue [None]
  - Nausea [None]
